FAERS Safety Report 10035848 (Version 3)
Quarter: 2014Q2

REPORT INFORMATION
  Report Type: Report from Study
  Country: NL (occurrence: NL)
  Receive Date: 20140325
  Receipt Date: 20140527
  Transmission Date: 20141212
  Serious: Yes (Death)
  Sender: FDA-Public Use
  Company Number: NL-ABBVIE-14P-114-1210953-00

PATIENT
  Age: 63 Year
  Sex: Male

DRUGS (4)
  1. LUCRIN [Suspect]
     Indication: PROSTATE CANCER
     Route: 058
     Dates: start: 20121015, end: 20140315
  2. MORPHINE [Suspect]
     Indication: PAIN
     Route: 058
  3. OXYCONTIN [Concomitant]
     Indication: PAIN
  4. ESOMEPRAZOL [Concomitant]
     Indication: GASTRIC DISORDER
     Route: 048

REACTIONS (5)
  - Death [Fatal]
  - General physical condition abnormal [Not Recovered/Not Resolved]
  - Nausea [Not Recovered/Not Resolved]
  - Fatigue [Not Recovered/Not Resolved]
  - Vomiting [Not Recovered/Not Resolved]
